FAERS Safety Report 10252184 (Version 2)
Quarter: 2014Q2

REPORT INFORMATION
  Report Type: Report from Study
  Country: GB (occurrence: GB)
  Receive Date: 20140623
  Receipt Date: 20140623
  Transmission Date: 20141212
  Serious: Yes (Hospitalization)
  Sender: FDA-Public Use
  Company Number: GB-JNJFOC-20131204095

PATIENT
  Age: 39 Year
  Sex: Female
  Weight: 51.8 kg

DRUGS (6)
  1. STELARA [Suspect]
     Indication: PSORIASIS
     Route: 058
     Dates: start: 20130630
  2. TRAMADOL [Concomitant]
     Route: 065
     Dates: start: 20131206
  3. NAPROXEN [Concomitant]
     Route: 065
     Dates: start: 20140221
  4. CO-CODAMOL [Concomitant]
     Route: 065
     Dates: start: 20131227
  5. TRIMOVATE [Concomitant]
     Route: 065
     Dates: start: 20130925
  6. LOTRIDERM [Concomitant]
     Route: 065
     Dates: start: 20131014

REACTIONS (5)
  - Road traffic accident [Recovered/Resolved]
  - Humerus fracture [Unknown]
  - Rotator cuff syndrome [Unknown]
  - Peripheral nerve paresis [Unknown]
  - Fracture malunion [Unknown]
